FAERS Safety Report 18363643 (Version 1)
Quarter: 2020Q4

REPORT INFORMATION
  Report Type: Spontaneous
  Country: US (occurrence: US)
  Receive Date: 20201009
  Receipt Date: 20201009
  Transmission Date: 20210114
  Serious: Yes (Other)
  Sender: FDA-Public Use
  Company Number: US-PFIZER INC-2020384247

PATIENT
  Age: 54 Year
  Sex: Female
  Weight: 79.38 kg

DRUGS (5)
  1. PRISTIQ EXTENDED-RELEASE [Suspect]
     Active Substance: DESVENLAFAXINE SUCCINATE
     Dosage: 50 MG
  2. FOCALIN [DEXAMETHASONE;OFLOXACIN HYDROCHLORIDE] [Concomitant]
     Indication: ATTENTION DEFICIT HYPERACTIVITY DISORDER
     Dosage: 10 MG, 1X/DAY
  3. CONCERTA [Concomitant]
     Active Substance: METHYLPHENIDATE HYDROCHLORIDE
     Indication: ATTENTION DEFICIT HYPERACTIVITY DISORDER
     Dosage: 30 MG
  4. PRISTIQ EXTENDED-RELEASE [Suspect]
     Active Substance: DESVENLAFAXINE SUCCINATE
     Indication: DEPRESSION
     Dosage: 25 MG
     Dates: start: 201205
  5. KLONOPIN [Concomitant]
     Active Substance: CLONAZEPAM
     Indication: ANXIETY
     Dosage: UNK

REACTIONS (9)
  - Mental disorder [Unknown]
  - Condition aggravated [Unknown]
  - Tearfulness [Unknown]
  - Depression [Unknown]
  - Heart rate increased [Unknown]
  - Anxiety [Unknown]
  - Amnesia [Recovered/Resolved]
  - Panic attack [Unknown]
  - Suicidal ideation [Unknown]
